FAERS Safety Report 8541324-6 (Version None)
Quarter: 2012Q3

REPORT INFORMATION
  Report Type: 
  Country: None (occurrence: None)
  Receive Date: 20120726
  Receipt Date: 20120723
  Transmission Date: 20120928
  Serious: Yes (Hospitalization, Other)
  Sender: FDA-Public Use
  Company Number: US-009507513-1204USA02814

PATIENT

DRUGS (6)
  1. VITAMIN D (UNSPECIFIED) [Concomitant]
     Indication: PRODUCT USED FOR UNKNOWN INDICATION
     Dosage: 1000 U, QD
     Route: 048
     Dates: start: 20000101
  2. ALENDRONATE SODIUM [Suspect]
     Dosage: 35 MG, UNK
     Route: 048
     Dates: start: 20090211, end: 20111001
  3. FOSAMAX [Suspect]
     Indication: OSTEOPOROSIS
     Dosage: 10 MG, UNK
     Route: 048
     Dates: start: 20000417, end: 20020801
  4. FOSAMAX [Suspect]
     Dosage: 35 MG, UNK
     Route: 048
  5. ALENDRONATE SODIUM [Suspect]
     Indication: PRODUCT USED FOR UNKNOWN INDICATION
     Dosage: 70 MG, UNK
     Route: 048
     Dates: start: 20080216, end: 20081201
  6. FOSAMAX [Suspect]
     Indication: OSTEOPENIA
     Dosage: 70 MG, UNK
     Route: 048
     Dates: start: 20020819

REACTIONS (45)
  - DYSLIPIDAEMIA [None]
  - RESPIRATORY FAILURE [None]
  - HAEMATURIA [None]
  - ACTINIC KERATOSIS [None]
  - HAEMATOCHEZIA [None]
  - ASTHMA [None]
  - ESSENTIAL HYPERTENSION [None]
  - ARTERIOSCLEROSIS CORONARY ARTERY [None]
  - DIABETES MELLITUS [None]
  - LUMBAR RADICULOPATHY [None]
  - FALL [None]
  - HYPERCHOLESTEROLAEMIA [None]
  - HYPERTENSION [None]
  - PAIN [None]
  - BACK PAIN [None]
  - RHINITIS ALLERGIC [None]
  - LOWER LIMB FRACTURE [None]
  - TRANSIENT ISCHAEMIC ATTACK [None]
  - ILEUS PARALYTIC [None]
  - EMPHYSEMA [None]
  - CHRONIC OBSTRUCTIVE PULMONARY DISEASE [None]
  - ANXIETY [None]
  - BRONCHITIS CHRONIC [None]
  - INSOMNIA [None]
  - SCOLIOSIS [None]
  - OSTEOARTHRITIS [None]
  - INTERVERTEBRAL DISC DEGENERATION [None]
  - ACUTE RESPIRATORY FAILURE [None]
  - TOOTH INFECTION [None]
  - RECTAL HAEMORRHAGE [None]
  - AGE-RELATED MACULAR DEGENERATION [None]
  - JOINT EFFUSION [None]
  - ANAEMIA [None]
  - COLONIC POLYP [None]
  - LOW TURNOVER OSTEOPATHY [None]
  - INFECTION [None]
  - COUGH [None]
  - TRIGGER FINGER [None]
  - HIATUS HERNIA [None]
  - FEMUR FRACTURE [None]
  - GASTROOESOPHAGEAL REFLUX DISEASE [None]
  - OEDEMA [None]
  - UTERINE DISORDER [None]
  - CARDIAC FAILURE CONGESTIVE [None]
  - INFECTIVE EXACERBATION OF CHRONIC OBSTRUCTIVE AIRWAYS DISEASE [None]
